FAERS Safety Report 7350534-5 (Version None)
Quarter: 2011Q1

REPORT INFORMATION
  Report Type: 
  Country: None (occurrence: None)
  Receive Date: 20110222
  Receipt Date: 20101202
  Transmission Date: 20110831
  Serious: No
  Sender: FDA-Public Use
  Company Number: 023092

PATIENT
  Sex: Male

DRUGS (2)
  1. PHENYTOIN [Concomitant]
  2. LACOSAMIDE [Suspect]

REACTIONS (1)
  - AGGRESSION [None]
